FAERS Safety Report 5726064-0 (Version None)
Quarter: 2008Q2

REPORT INFORMATION
  Report Type: 
  Country: None (occurrence: None)
  Receive Date: 20080430
  Receipt Date: 20080419
  Transmission Date: 20081010
  Serious: Yes (Death, Hospitalization, Other)
  Sender: FDA-Public Use
  Company Number: 163-21880-08040445

PATIENT
  Age: 78 Year
  Sex: Male

DRUGS (1)
  1. REVLIMID [Suspect]
     Indication: MYELODYSPLASTIC SYNDROME
     Dosage: 5 MG, QD X 28D, ORAL
     Dates: start: 20080317, end: 20080403

REACTIONS (4)
  - ACUTE LEUKAEMIA [None]
  - DISEASE PROGRESSION [None]
  - LEUKOSTASIS [None]
  - MYELODYSPLASTIC SYNDROME [None]
